FAERS Safety Report 9839815 (Version 2)
Quarter: 2016Q3

REPORT INFORMATION
  Report Type: Spontaneous
  Country: BR (occurrence: BR)
  Receive Date: 20140124
  Receipt Date: 20160726
  Transmission Date: 20161109
  Serious: Yes (Other)
  Sender: FDA-Public Use
  Company Number: BR-BRISTOL-MYERS SQUIBB COMPANY-20073128

PATIENT
  Age: 65 Year
  Sex: Female

DRUGS (4)
  1. LOSARTAN. [Suspect]
     Active Substance: LOSARTAN
     Indication: HYPERTENSION
     Route: 065
  2. ATENOLOL. [Suspect]
     Active Substance: ATENOLOL
     Indication: HYPERTENSION
     Route: 065
  3. NPH INSULIN [Suspect]
     Active Substance: INSULIN BEEF
     Indication: DIABETES MELLITUS
     Dosage: UNK
     Route: 065
  4. METFORMIN HYDROCHLORIDE. [Suspect]
     Active Substance: METFORMIN HYDROCHLORIDE
     Indication: DIABETES MELLITUS
     Dosage: UNK
     Route: 065

REACTIONS (5)
  - Dacryocystitis [Unknown]
  - Hypermetropia [Unknown]
  - Eyelid oedema [Unknown]
  - Myopia [Unknown]
  - Diffuse large B-cell lymphoma [Unknown]
